FAERS Safety Report 4313645-4 (Version None)
Quarter: 2004Q1

REPORT INFORMATION
  Report Type: 
  Country: None (occurrence: None)
  Receive Date: 20040305
  Receipt Date: 20040226
  Transmission Date: 20041129
  Serious: Yes (Death, Hospitalization)
  Sender: FDA-Public Use
  Company Number: 2004005884

PATIENT
  Age: 55 Year
  Sex: Female

DRUGS (2)
  1. DILANTIN [Suspect]
     Indication: CONVULSION
     Dates: start: 20020101
  2. ALL OTHER THERAPEUTIC PRODUCTS [Concomitant]

REACTIONS (9)
  - ANXIETY [None]
  - CATHETER SITE INFECTION [None]
  - CONVULSION [None]
  - EMOTIONAL DISTRESS [None]
  - HAEMORRHAGE [None]
  - HYPERTENSION [None]
  - NERVOUS SYSTEM DISORDER [None]
  - RASH [None]
  - URINARY TRACT INFECTION [None]
